FAERS Safety Report 13877688 (Version 1)
Quarter: 2017Q3

REPORT INFORMATION
  Report Type: Spontaneous
  Country: IT (occurrence: IT)
  Receive Date: 20170817
  Receipt Date: 20170817
  Transmission Date: 20171127
  Serious: Yes (Other)
  Sender: FDA-Public Use
  Company Number: IT-PFIZER INC-2017357665

PATIENT
  Age: 9 Year
  Sex: Male

DRUGS (1)
  1. DIAZEPAM. [Suspect]
     Active Substance: DIAZEPAM
     Indication: HYDROCEPHALUS
     Dosage: 10 MG, AS NEEDED
     Route: 054

REACTIONS (2)
  - Lip oedema [Unknown]
  - Epilepsy [Unknown]

NARRATIVE: CASE EVENT DATE: 20170815
